FAERS Safety Report 17967918 (Version 1)
Quarter: 2020Q2

REPORT INFORMATION
  Report Type: Spontaneous
  Country: US (occurrence: US)
  Receive Date: 20200630
  Receipt Date: 20200630
  Transmission Date: 20200714
  Serious: Yes (Other)
  Sender: FDA-Public Use
  Company Number: None

PATIENT
  Age: 43 Year
  Sex: Male
  Weight: 83.25 kg

DRUGS (4)
  1. MOBIC [Concomitant]
     Active Substance: MELOXICAM
  2. LEXAPRO [Concomitant]
     Active Substance: ESCITALOPRAM OXALATE
  3. NEXIUM [Concomitant]
     Active Substance: ESOMEPRAZOLE MAGNESIUM
  4. FLUTICASONE PROPIONATE NASAL SPRAY USP 50MCG [Suspect]
     Active Substance: FLUTICASONE PROPIONATE
     Indication: MULTIPLE ALLERGIES
     Dosage: ?          QUANTITY:2 PUFF(S);?
     Route: 055
     Dates: start: 20200520, end: 20200627

REACTIONS (3)
  - Dyspnoea [None]
  - Heart rate increased [None]
  - Asthenia [None]

NARRATIVE: CASE EVENT DATE: 20200627
